FAERS Safety Report 4440771-1 (Version None)
Quarter: 2004Q3

REPORT INFORMATION
  Report Type: 
  Country: None (occurrence: None)
  Receive Date: 20040824
  Receipt Date: 20040813
  Transmission Date: 20050211
  Serious: No
  Sender: FDA-Public Use
  Company Number: CART-10355

PATIENT
  Age: 48 Year
  Sex: Male

DRUGS (1)
  1. CARTICEL [Suspect]
     Indication: ARTHROPATHY
     Dosage: 1 NA ONCE IS
     Route: 035
     Dates: start: 19991027, end: 19991027

REACTIONS (5)
  - ACCIDENT AT WORK [None]
  - CHONDROPATHY [None]
  - FAILURE OF IMPLANT [None]
  - JOINT INJURY [None]
  - OSTEOARTHRITIS [None]
